FAERS Safety Report 5181104-5 (Version None)
Quarter: 2006Q4

REPORT INFORMATION
  Report Type: 
  Country: None (occurrence: None)
  Receive Date: 20061212
  Receipt Date: 20061201
  Transmission Date: 20070319
  Serious: Yes (Other)
  Sender: FDA-Public Use
  Company Number: 2006148763

PATIENT
  Sex: Female

DRUGS (1)
  1. LIPITOR [Suspect]
     Dates: start: 20010101

REACTIONS (3)
  - ASTHENIA [None]
  - DIABETES MELLITUS [None]
  - PAIN IN EXTREMITY [None]
